FAERS Safety Report 25041201 (Version 1)
Quarter: 2025Q1

REPORT INFORMATION
  Report Type: Spontaneous
  Country: US (occurrence: US)
  Receive Date: 20250305
  Receipt Date: 20250305
  Transmission Date: 20250408
  Serious: Yes (Hospitalization)
  Sender: MEITHEAL PHARMACEUTICALS
  Company Number: US-MEITHEAL-2025MPLIT00077

PATIENT
  Age: 31 Year
  Sex: Female

DRUGS (1)
  1. THIOTEPA [Suspect]
     Active Substance: THIOTEPA
     Indication: Product used for unknown indication
     Route: 065

REACTIONS (3)
  - Mucosal inflammation [Unknown]
  - Mucosal ulceration [Unknown]
  - Toxic erythema of chemotherapy [Unknown]
